FAERS Safety Report 14841427 (Version 1)
Quarter: 2018Q2

REPORT INFORMATION
  Report Type: Spontaneous
  Country: US (occurrence: US)
  Receive Date: 20180503
  Receipt Date: 20180503
  Transmission Date: 20180711
  Serious: Yes (Other)
  Sender: FDA-Public Use
  Company Number: US-CHIESI USA INC-US-CHSI-18-00017

PATIENT
  Sex: Female

DRUGS (1)
  1. KENGREAL [Suspect]
     Active Substance: CANGRELOR
     Indication: PRODUCT USED FOR UNKNOWN INDICATION
     Dosage: 0.75 MCG/KG/MIN
     Route: 041

REACTIONS (2)
  - Coronary artery dissection [Unknown]
  - Off label use [Unknown]
